FAERS Safety Report 5385190-9 (Version None)
Quarter: 2007Q3

REPORT INFORMATION
  Report Type: 
  Country: None (occurrence: None)
  Receive Date: 20070712
  Receipt Date: 20070702
  Transmission Date: 20080115
  Serious: Yes (Other)
  Sender: FDA-Public Use
  Company Number: AU-JNJFOC-20070700662

PATIENT
  Sex: Female

DRUGS (3)
  1. DURAGESIC-100 [Suspect]
     Indication: PAIN
     Route: 062
  2. ENDONE [Concomitant]
     Indication: PROCEDURAL PAIN
  3. ACETAMINOPHEN W/ CODEINE [Concomitant]
     Indication: PROCEDURAL PAIN

REACTIONS (4)
  - BREAKTHROUGH PAIN [None]
  - PHARMACEUTICAL PRODUCT COMPLAINT [None]
  - PULMONARY EMBOLISM [None]
  - WRONG TECHNIQUE IN DRUG USAGE PROCESS [None]
